FAERS Safety Report 5191180-1 (Version None)
Quarter: 2006Q4

REPORT INFORMATION
  Report Type: 
  Country: None (occurrence: None)
  Receive Date: 20061218
  Receipt Date: 20061206
  Transmission Date: 20070319
  Serious: Yes (Death)
  Sender: FDA-Public Use
  Company Number: 2006150375

PATIENT
  Age: 78 Year
  Sex: Male

DRUGS (8)
  1. INSPRA [Suspect]
     Indication: CONGESTIVE CARDIOMYOPATHY
     Dosage: 50 MG, ORAL
     Route: 048
     Dates: start: 20061124, end: 20061130
  2. SPIRONOLACTONE [Concomitant]
  3. RAMIPRIL [Concomitant]
  4. ACETYLSALICYLIC ACID SRT [Concomitant]
  5. SIMVASTATIN [Concomitant]
  6. AMIODARONE HCL [Concomitant]
  7. PANTOZOL (PANTOPRAZOLE SODIUM) [Concomitant]
  8. TORSEMIDE [Concomitant]

REACTIONS (7)
  - CARDIAC ARREST [None]
  - CONSTIPATION [None]
  - DIALYSIS [None]
  - DIARRHOEA [None]
  - GENERAL PHYSICAL HEALTH DETERIORATION [None]
  - HEPATIC FAILURE [None]
  - RENAL FAILURE [None]
